FAERS Safety Report 16029636 (Version 2)
Quarter: 2019Q1

REPORT INFORMATION
  Report Type: Other
  Country: DE (occurrence: DE)
  Receive Date: 20190304
  Receipt Date: 20190307
  Transmission Date: 20190418
  Serious: Yes (Death, Life-Threatening, Hospitalization, Other)
  Sender: FDA-Public Use
  Company Number: DE-APOTEX-2019AP008517

PATIENT
  Age: 85 Year
  Sex: Male

DRUGS (17)
  1. CLOPIDOGREL [Suspect]
     Active Substance: CLOPIDOGREL BISULFATE
     Indication: PRODUCT USED FOR UNKNOWN INDICATION
     Dosage: 75 MG, QD
     Route: 065
  2. TAMSULOSINE                        /01280301/ [Concomitant]
     Active Substance: TAMSULOSIN
     Indication: PRODUCT USED FOR UNKNOWN INDICATION
     Dosage: 0.4 MG, QD (QD)
     Route: 065
  3. PANTOPRAZOLE [Concomitant]
     Active Substance: PANTOPRAZOLE
     Indication: PRODUCT USED FOR UNKNOWN INDICATION
     Dosage: 40 MG, QD
     Route: 065
  4. ACETYLCYSTEINE. [Concomitant]
     Active Substance: ACETYLCYSTEINE
     Dosage: UNK
     Route: 065
  5. POTASSIUM [Concomitant]
     Active Substance: POTASSIUM
     Indication: PRODUCT USED FOR UNKNOWN INDICATION
     Dosage: 40 MMOL, UNK
     Route: 065
  6. POTASSIUM [Concomitant]
     Active Substance: POTASSIUM
     Dosage: UNK
     Route: 065
  7. TAMSULOSINE                        /01280301/ [Concomitant]
     Active Substance: TAMSULOSIN
     Dosage: UNK, QD
     Route: 065
  8. SACUBITRIL W/VALSARTAN [Concomitant]
     Active Substance: SACUBITRIL\VALSARTAN
     Dosage: UNK
     Route: 065
  9. PANTOPRAZOLE [Concomitant]
     Active Substance: PANTOPRAZOLE
     Dosage: UNK
     Route: 065
  10. ASPIRIN                            /00002701/ [Suspect]
     Active Substance: ASPIRIN
     Indication: PRODUCT USED FOR UNKNOWN INDICATION
     Dosage: 100 MG, UNK
     Route: 065
  11. SACUBITRIL W/VALSARTAN [Concomitant]
     Active Substance: SACUBITRIL\VALSARTAN
     Indication: PRODUCT USED FOR UNKNOWN INDICATION
     Dosage: 1 DF, BID
     Route: 065
  12. SIMVASTATIN. [Concomitant]
     Active Substance: SIMVASTATIN
     Dosage: UNK
     Route: 065
  13. ACETYLCYSTEINE. [Concomitant]
     Active Substance: ACETYLCYSTEINE
     Indication: PRODUCT USED FOR UNKNOWN INDICATION
     Dosage: 500 MG, BID
     Route: 065
  14. SIMVASTATIN. [Concomitant]
     Active Substance: SIMVASTATIN
     Indication: PRODUCT USED FOR UNKNOWN INDICATION
     Dosage: 40 MG, QD
     Route: 065
  15. TORASEMIDE                         /01036502/ [Concomitant]
     Indication: PRODUCT USED FOR UNKNOWN INDICATION
     Dosage: 20 MG, QD
     Route: 065
  16. APIXABAN [Suspect]
     Active Substance: APIXABAN
     Indication: CEREBROVASCULAR ACCIDENT PROPHYLAXIS
     Dosage: 2.5 MG, BID
     Route: 048
     Dates: start: 201604
  17. METOPROLOL. [Concomitant]
     Active Substance: METOPROLOL
     Indication: PRODUCT USED FOR UNKNOWN INDICATION
     Dosage: 95 MG, UNK (ONE IN THE MORNING AND HALF AT NIGHT (1-0-1/2)
     Route: 065

REACTIONS (2)
  - Cerebral haemorrhage [Fatal]
  - Contraindicated product administered [Unknown]

NARRATIVE: CASE EVENT DATE: 20160718
